FAERS Safety Report 12126165 (Version 1)
Quarter: 2016Q1

REPORT INFORMATION
  Report Type: Report from Study
  Country: CA (occurrence: CA)
  Receive Date: 20160229
  Receipt Date: 20160229
  Transmission Date: 20160526
  Serious: Yes (Hospitalization)
  Sender: FDA-Public Use
  Company Number: CA-ROCHE-ITM201506IM018283

PATIENT
  Age: 77 Year
  Sex: Female
  Weight: 71.2 kg

DRUGS (13)
  1. DIGOXIN. [Concomitant]
     Active Substance: DIGOXIN
  2. DOCUSATE [Concomitant]
     Active Substance: DOCUSATE
  3. PANTOPRAZOLE [Concomitant]
     Active Substance: PANTOPRAZOLE SODIUM
  4. ATORVASTATIN [Concomitant]
     Active Substance: ATORVASTATIN
  5. ACETYLCYSTEINE. [Concomitant]
     Active Substance: ACETYLCYSTEINE
  6. PRADAXA [Concomitant]
     Active Substance: DABIGATRAN ETEXILATE MESYLATE
  7. GAVISCON (CANADA) [Concomitant]
  8. DILTIAZEM [Concomitant]
     Active Substance: DILTIAZEM
  9. RANITIDINE [Concomitant]
     Active Substance: RANITIDINE\RANITIDINE HYDROCHLORIDE
  10. FUROSEMIDE. [Concomitant]
     Active Substance: FUROSEMIDE
  11. DABIGATRAN [Concomitant]
     Active Substance: DABIGATRAN
  12. ESBRIET [Suspect]
     Active Substance: PIRFENIDONE
     Indication: IDIOPATHIC PULMONARY FIBROSIS
     Route: 048
     Dates: start: 20141227
  13. ESBRIET [Suspect]
     Active Substance: PIRFENIDONE
     Dosage: 2136 MG
     Route: 048

REACTIONS (19)
  - Tremor [Not Recovered/Not Resolved]
  - Exercise tolerance decreased [Unknown]
  - Weight decreased [Unknown]
  - Oedema peripheral [Unknown]
  - Heart rate increased [Not Recovered/Not Resolved]
  - Dyspnoea exertional [Unknown]
  - Heart rate irregular [Unknown]
  - Walking distance test abnormal [Unknown]
  - Hypoxia [Unknown]
  - Respiratory syncytial virus infection [Unknown]
  - Nausea [Not Recovered/Not Resolved]
  - Pulmonary function test decreased [Not Recovered/Not Resolved]
  - Asthenia [Unknown]
  - Oxygen saturation decreased [Unknown]
  - Productive cough [Unknown]
  - Poor quality sleep [Unknown]
  - Dyspnoea [Unknown]
  - Rales [Unknown]
  - Drug intolerance [Not Recovered/Not Resolved]

NARRATIVE: CASE EVENT DATE: 201504
